FAERS Safety Report 7761705-8 (Version None)
Quarter: 2011Q3

REPORT INFORMATION
  Report Type: 
  Country: None (occurrence: None)
  Receive Date: 20110920
  Receipt Date: 20110325
  Transmission Date: 20111222
  Serious: Yes (Other)
  Sender: FDA-Public Use
  Company Number: US-BAYER-200940904NA

PATIENT
  Sex: Male

DRUGS (1)
  1. TRASYLOL [Suspect]
     Indication: PRODUCT USED FOR UNKNOWN INDICATION

REACTIONS (11)
  - ANXIETY [None]
  - PAIN [None]
  - DEPRESSION [None]
  - MULTI-ORGAN FAILURE [None]
  - RENAL FAILURE [None]
  - DISABILITY [None]
  - UNEVALUABLE EVENT [None]
  - INJURY [None]
  - FEAR [None]
  - ANHEDONIA [None]
  - RENAL INJURY [None]
